FAERS Safety Report 8791637 (Version 1)
Quarter: 2012Q4

REPORT INFORMATION
  Report Type: 
  Country: US (occurrence: US)
  Receive Date: 20120918
  Receipt Date: 20120918
  Transmission Date: 20130627
  Serious: Yes (Other)
  Sender: FDA-Public Use
  Company Number: PHHO2012US012933

PATIENT
  Age: 61 None

DRUGS (3)
  1. PAMIDRONATE [Suspect]
  2. ADRIAMYCIN [Suspect]
     Indication: MULTIPLE MYELOMA
  3. VELCADE [Suspect]
     Indication: MULTIPLE MYELOMA

REACTIONS (7)
  - Renal failure acute [Unknown]
  - Deep vein thrombosis [Unknown]
  - Oedema peripheral [Unknown]
  - Hyperglycaemia [Unknown]
  - Blood urea increased [Unknown]
  - Blood creatinine increased [Unknown]
  - Subclavian vein thrombosis [None]
